FAERS Safety Report 14647859 (Version 3)
Quarter: 2018Q2

REPORT INFORMATION
  Report Type: Spontaneous
  Country: US (occurrence: US)
  Receive Date: 20180316
  Receipt Date: 20180628
  Transmission Date: 20180711
  Serious: No
  Sender: FDA-Public Use
  Company Number: US-PFIZER INC-2018068803

PATIENT
  Age: 60 Year
  Sex: Female

DRUGS (7)
  1. TAXOTERE [Suspect]
     Active Substance: DOCETAXEL
     Indication: BREAST CANCER FEMALE
  2. FEMARA [Concomitant]
     Active Substance: LETROZOLE
     Dosage: UNK
     Dates: start: 2006, end: 2010
  3. TAXOTERE [Suspect]
     Active Substance: DOCETAXEL
     Indication: CHEMOTHERAPY
     Dosage: UNK, EVERY 3 WEEKS (NUMBER OF CYCLES: 06)
     Dates: start: 20090820, end: 20091205
  4. DOCETAXEL. [Suspect]
     Active Substance: DOCETAXEL
     Indication: CHEMOTHERAPY
     Dosage: UNK, EVERY 3 WEEKS (NUMBER OF CYCLES: 06)
     Dates: start: 20090820, end: 20091205
  5. PARAPLATIN [Concomitant]
     Active Substance: CARBOPLATIN
     Dosage: UNK
  6. LISINOPRIL. [Concomitant]
     Active Substance: LISINOPRIL
     Indication: HYPERTENSION
     Dosage: UNK
     Dates: start: 2005
  7. DOCETAXEL. [Suspect]
     Active Substance: DOCETAXEL
     Indication: BREAST CANCER FEMALE

REACTIONS (5)
  - Alopecia [Not Recovered/Not Resolved]
  - Hair texture abnormal [Not Recovered/Not Resolved]
  - Hair colour changes [Not Recovered/Not Resolved]
  - Madarosis [Not Recovered/Not Resolved]
  - Hair disorder [Not Recovered/Not Resolved]

NARRATIVE: CASE EVENT DATE: 2009
